FAERS Safety Report 5905381-5 (Version None)
Quarter: 2008Q4

REPORT INFORMATION
  Report Type: 
  Country: None (occurrence: None)
  Receive Date: 20081001
  Receipt Date: 20080919
  Transmission Date: 20090506
  Serious: Yes (Other)
  Sender: FDA-Public Use
  Company Number: US-PFIZER INC-2008079864

PATIENT
  Sex: Female
  Weight: 68 kg

DRUGS (2)
  1. CHANTIX [Suspect]
     Indication: SMOKING CESSATION THERAPY
     Dates: start: 20080501, end: 20080601
  2. PAXIL [Concomitant]

REACTIONS (4)
  - CONVULSION [None]
  - HALLUCINATION [None]
  - SEROTONIN SYNDROME [None]
  - SERUM SEROTONIN INCREASED [None]
